FAERS Safety Report 20048146 (Version 1)
Quarter: 2021Q4

REPORT INFORMATION
  Report Type: Other
  Country: JP (occurrence: None)
  Receive Date: 20211109
  Receipt Date: 20211109
  Transmission Date: 20220303
  Serious: Yes (Hospitalization)
  Sender: FDA-Public Use
  Company Number: JP-ROCHE-2953351

PATIENT
  Age: 40 Year
  Sex: Male

DRUGS (16)
  1. DIAZEPAM [Suspect]
     Active Substance: DIAZEPAM
     Indication: Epilepsy
     Route: 030
  2. INSULIN DEGLUDEC [Concomitant]
     Active Substance: INSULIN DEGLUDEC
  3. INSULIN ASPART [Concomitant]
     Active Substance: INSULIN ASPART
  4. FUROSEMIDE [Concomitant]
     Active Substance: FUROSEMIDE
  5. CALCIUM CARBONATE [Concomitant]
     Active Substance: CALCIUM CARBONATE
  6. FERROUS SULFATE [Concomitant]
     Active Substance: FERROUS SULFATE
  7. ASCORBIC ACID [Concomitant]
     Active Substance: ASCORBIC ACID
  8. CALCIUM PANTOTHENATE [Concomitant]
     Active Substance: CALCIUM PANTOTHENATE
  9. EZETIMIBE [Concomitant]
     Active Substance: EZETIMIBE
  10. MOSAPRIDE CITRATE DIHYDRATE [Concomitant]
     Active Substance: MOSAPRIDE CITRATE DIHYDRATE
  11. SENNA PODS [Concomitant]
     Active Substance: SENNA PODS
  12. SENNOSIDES [Concomitant]
     Active Substance: SENNOSIDES
  13. FEXOFENADINE HYDROCHLORIDE [Concomitant]
     Active Substance: FEXOFENADINE HYDROCHLORIDE
  14. PROPOFOL [Concomitant]
     Active Substance: PROPOFOL
     Route: 042
  15. DEXMEDETOMIDINE [Concomitant]
     Active Substance: DEXMEDETOMIDINE
  16. LEVETIRACETAM [Concomitant]
     Active Substance: LEVETIRACETAM

REACTIONS (1)
  - Generalised tonic-clonic seizure [Unknown]
